FAERS Safety Report 9202616 (Version 3)
Quarter: 2013Q3

REPORT INFORMATION
  Report Type: Spontaneous
  Country: US (occurrence: US)
  Receive Date: 20130401
  Receipt Date: 20130821
  Transmission Date: 20140515
  Serious: Yes (Hospitalization, Other)
  Sender: FDA-Public Use
  Company Number: US-009507513-1303USA014408

PATIENT
  Sex: Female
  Weight: 50.79 kg

DRUGS (1)
  1. NUVARING [Suspect]
     Indication: CONTRACEPTION
     Dosage: UNK
     Route: 067
     Dates: start: 20081212, end: 20110408

REACTIONS (9)
  - Abortion [Unknown]
  - Pulmonary embolism [Unknown]
  - Deep vein thrombosis [Unknown]
  - Sciatica [Unknown]
  - Diverticulum [Unknown]
  - Cardiac aneurysm [Unknown]
  - Acquired protein S deficiency [Unknown]
  - Factor II mutation [Unknown]
  - Antithrombin III deficiency [Unknown]
